FAERS Safety Report 9332522 (Version 1)
Quarter: 2013Q2

REPORT INFORMATION
  Report Type: Spontaneous
  Country: GB (occurrence: None)
  Receive Date: 20130603
  Receipt Date: 20130603
  Transmission Date: 20140414
  Serious: Yes (Hospitalization)
  Sender: FDA-Public Use
  Company Number: 1728995

PATIENT
  Age: 52 Year
  Sex: Male
  Weight: 49.44 kg

DRUGS (4)
  1. CALCIUM FOLINATE [Suspect]
     Indication: COLON CANCER METASTATIC
     Dosage: 1 WEEK
     Route: 042
     Dates: start: 20130307
  2. OXALIPLATIN [Suspect]
     Indication: COLON CANCER METASTATIC
     Dosage: 1 WEEK
     Route: 042
     Dates: start: 20130307
  3. FLUOROURACIL [Suspect]
     Indication: COLON CANCER METASTATIC
     Dosage: 1 WEEK
     Route: 040
     Dates: start: 20130307
  4. BEVACIZUMAB [Concomitant]

REACTIONS (4)
  - Neutropenic sepsis [None]
  - Haemoglobin decreased [None]
  - Platelet count decreased [None]
  - Haematotoxicity [None]
